FAERS Safety Report 21601468 (Version 3)
Quarter: 2023Q1

REPORT INFORMATION
  Report Type: Report from Study
  Country: CA (occurrence: CA)
  Receive Date: 20221116
  Receipt Date: 20230109
  Transmission Date: 20230418
  Serious: Yes (Other)
  Sender: FDA-Public Use
  Company Number: CA-JNJFOC-20201204978

PATIENT
  Age: 83 Year
  Sex: Female
  Weight: 68.2 kg

DRUGS (2)
  1. REMICADE [Suspect]
     Active Substance: INFLIXIMAB
     Indication: Rheumatoid arthritis
     Route: 042
     Dates: start: 20140407
  2. REMICADE [Suspect]
     Active Substance: INFLIXIMAB
     Dosage: 90TH REMICADE INFUSION DOSE GIVEN
     Route: 042

REACTIONS (11)
  - Blood pressure increased [Unknown]
  - Arthralgia [Not Recovered/Not Resolved]
  - Pain in extremity [Not Recovered/Not Resolved]
  - Fungal infection [Recovered/Resolved]
  - Fall [Unknown]
  - Bladder prolapse [Recovering/Resolving]
  - Insomnia [Unknown]
  - Headache [Unknown]
  - Back pain [Not Recovered/Not Resolved]
  - Pain [Not Recovered/Not Resolved]
  - Therapeutic product effect decreased [Unknown]

NARRATIVE: CASE EVENT DATE: 20201201
